FAERS Safety Report 7331407-0 (Version None)
Quarter: 2011Q1

REPORT INFORMATION
  Report Type: 
  Country: None (occurrence: None)
  Receive Date: 20110304
  Receipt Date: 20110221
  Transmission Date: 20110831
  Serious: Yes (Death, Other)
  Sender: FDA-Public Use
  Company Number: US-PAR PHARMACEUTICAL, INC-2011SCPR002719

PATIENT
  Age: 38 Year
  Sex: Male

DRUGS (3)
  1. DEXAMETHASONE [Suspect]
     Indication: GLIOBLASTOMA MULTIFORME
     Dosage: 2 MG, BID
     Route: 048
  2. IRINOTECAN [Suspect]
     Indication: GLIOBLASTOMA MULTIFORME
     Dosage: 125 MG/M^2, EVERY 2 WKS ,THERAPY CONTINUED FOR 2 CYCLES (EACH CYCLE WAS 6 WKS FOR 6 DOSES OF CHEMO)
     Route: 065
  3. BEVACIZUMAB [Suspect]
     Indication: GLIOBLASTOMA MULTIFORME
     Dosage: 10 MG/KG, EVERY 2 WKS
     Route: 065

REACTIONS (7)
  - DEATH [None]
  - SKIN ULCER [None]
  - MYOPATHY [None]
  - DISEASE PROGRESSION [None]
  - CUSHINGOID [None]
  - SKIN STRIAE [None]
  - ACNE [None]
